FAERS Safety Report 9796203 (Version 1)
Quarter: 2014Q1

REPORT INFORMATION
  Report Type: Spontaneous
  Country: US (occurrence: US)
  Receive Date: 20140103
  Receipt Date: 20140103
  Transmission Date: 20141002
  Serious: Yes (Hospitalization)
  Sender: FDA-Public Use
  Company Number: US-JNJFOC-20131215010

PATIENT
  Age: 15 Year
  Sex: Male

DRUGS (2)
  1. HALOPERIDOL [Suspect]
     Indication: AGITATION
     Route: 042
  2. HALOPERIDOL [Suspect]
     Indication: AGITATION
     Dosage: AFTER HALF AN HOUR
     Route: 042

REACTIONS (6)
  - Unresponsive to stimuli [Recovered/Resolved]
  - Motor dysfunction [Recovered/Resolved]
  - Cognitive disorder [Recovered/Resolved]
  - Dyskinesia [Recovered/Resolved]
  - Off label use [Unknown]
  - Inappropriate schedule of drug administration [Unknown]
